FAERS Safety Report 9557239 (Version 2)
Quarter: 2014Q1

REPORT INFORMATION
  Report Type: Spontaneous
  Country: JP (occurrence: JP)
  Receive Date: 20130926
  Receipt Date: 20140124
  Transmission Date: 20141002
  Serious: Yes (Hospitalization)
  Sender: FDA-Public Use
  Company Number: JP-EISAI INC-E3810-06700-SPO-JP

PATIENT
  Sex: Male

DRUGS (4)
  1. PARIET (RABEPRAZOLE) [Suspect]
     Indication: GASTRIC ULCER
     Route: 048
     Dates: start: 20130814, end: 20130823
  2. OMEPRAZOLE SODIUM [Suspect]
     Indication: GASTRIC ULCER
     Route: 065
     Dates: start: 20130807, end: 20130813
  3. FLUMARIN [Suspect]
     Indication: PERITONITIS
     Route: 065
     Dates: start: 20130807, end: 20130816
  4. LANSAP [Suspect]
     Indication: HELICOBACTER INFECTION
     Route: 048
     Dates: start: 20130824, end: 20130826

REACTIONS (2)
  - Lymphocyte count increased [Recovered/Resolved]
  - Neutrophil count decreased [Recovered/Resolved]
